FAERS Safety Report 4748999-8 (Version None)
Quarter: 2005Q3

REPORT INFORMATION
  Report Type: 
  Country: None (occurrence: None)
  Receive Date: 20050819
  Receipt Date: 20050812
  Transmission Date: 20060218
  Serious: Yes (Other)
  Sender: FDA-Public Use
  Company Number: US-JNJFOC-20050803894

PATIENT
  Sex: Female
  Weight: 97.52 kg

DRUGS (6)
  1. LEVAQUIN [Suspect]
     Indication: BRONCHITIS
     Route: 048
     Dates: start: 20050407, end: 20050416
  2. LEVAQUIN [Suspect]
     Indication: EAR DISORDER
     Route: 048
     Dates: start: 20050407, end: 20050416
  3. LEVAQUIN [Suspect]
     Route: 048
     Dates: start: 20050407, end: 20050416
  4. LEVAQUIN [Suspect]
     Route: 048
     Dates: start: 20050407, end: 20050416
  5. AMBRISENTAN [Concomitant]
  6. PREDNISONE [Concomitant]
     Indication: NASAL DISORDER
     Route: 048

REACTIONS (2)
  - DEAFNESS NEUROSENSORY [None]
  - MIDDLE EAR EFFUSION [None]
